FAERS Safety Report 17560709 (Version 2)
Quarter: 2020Q3

REPORT INFORMATION
  Report Type: Spontaneous
  Country: DE (occurrence: DE)
  Receive Date: 20200319
  Receipt Date: 20200812
  Transmission Date: 20201102
  Serious: Yes (Other)
  Sender: FDA-Public Use
  Company Number: DE-PFIZER INC-2020107993

PATIENT
  Age: 24 Year
  Sex: Female

DRUGS (2)
  1. CYTOTEC [Suspect]
     Active Substance: MISOPROSTOL
     Indication: LABOUR INDUCTION
     Dosage: 2 DF, EVERY 4 HRS ((A TOTAL OF 2 TABLETS EVERY 4 HOURS)
     Route: 048
     Dates: start: 20160404, end: 20160404
  2. CYTOTEC [Suspect]
     Active Substance: MISOPROSTOL
     Indication: POSTMATURE BABY

REACTIONS (3)
  - Uterine tachysystole [Recovered/Resolved]
  - Off label use [Unknown]
  - Product use in unapproved indication [Unknown]

NARRATIVE: CASE EVENT DATE: 20160404
